FAERS Safety Report 16309425 (Version 4)
Quarter: 2022Q3

REPORT INFORMATION
  Report Type: Report from Study
  Country: CA (occurrence: CA)
  Receive Date: 20190514
  Receipt Date: 20220922
  Transmission Date: 20221026
  Serious: Yes (Other)
  Sender: FDA-Public Use
  Company Number: CA-TAKEDA-2019TUS028260

PATIENT
  Age: 56 Year
  Sex: Female

DRUGS (10)
  1. VEDOLIZUMAB [Suspect]
     Active Substance: VEDOLIZUMAB
     Indication: Crohn^s disease
     Dosage: 300 MILLIGRAM
     Route: 042
     Dates: start: 20180829
  2. VEDOLIZUMAB [Suspect]
     Active Substance: VEDOLIZUMAB
     Dosage: 300 MILLIGRAM, Q4WEEKS
     Route: 042
     Dates: start: 20190730
  3. VEDOLIZUMAB [Suspect]
     Active Substance: VEDOLIZUMAB
     Dosage: 300 MILLIGRAM, Q4WEEKS
     Route: 042
  4. IMURAN                             /00001501/ [Concomitant]
     Dosage: UNK
  5. ASACOL [Concomitant]
     Active Substance: MESALAMINE
     Dosage: UNK
  6. CYCLOBENZAPRINE [Concomitant]
     Active Substance: CYCLOBENZAPRINE
     Dosage: UNK
  7. ESTRADIOL [Concomitant]
     Active Substance: ESTRADIOL
     Dosage: UNK
  8. PREDNISONE [Concomitant]
     Active Substance: PREDNISONE
     Dosage: 40 MILLIGRAM
  9. ENALAPRIL [Concomitant]
     Active Substance: ENALAPRIL
     Dosage: UNK
  10. ESCITALOPRAM [Concomitant]
     Active Substance: ESCITALOPRAM OXALATE
     Dosage: UNK

REACTIONS (3)
  - Limb injury [Not Recovered/Not Resolved]
  - Neuralgia [Unknown]
  - Off label use [Unknown]

NARRATIVE: CASE EVENT DATE: 20190730
